FAERS Safety Report 18210202 (Version 1)
Quarter: 2020Q3

REPORT INFORMATION
  Report Type: Spontaneous
  Country: IN (occurrence: IN)
  Receive Date: 20200829
  Receipt Date: 20200829
  Transmission Date: 20201103
  Serious: Yes (Other)
  Sender: FDA-Public Use
  Company Number: IN-ALVOGEN-2020-ALVOGEN-114000

PATIENT
  Age: 49 Year
  Sex: Female

DRUGS (5)
  1. HOMATROPINE [Concomitant]
     Active Substance: HOMATROPINE HYDROBROMIDE
     Indication: KERATITIS FUNGAL
     Dosage: 2%
  2. VORICONAZOLE. [Suspect]
     Active Substance: VORICONAZOLE
     Indication: KERATITIS FUNGAL
     Dosage: INTRACAMERAL VORICONAZOLE INJECTION
  3. VORICONAZOLE. [Suspect]
     Active Substance: VORICONAZOLE
     Indication: KERATITIS FUNGAL
     Route: 048
  4. NATAMYCIN [Concomitant]
     Active Substance: NATAMYCIN
     Indication: KERATITIS FUNGAL
     Dosage: 5% HOURLY
     Route: 061
  5. VORICONAZOLE. [Suspect]
     Active Substance: VORICONAZOLE
     Indication: KERATITIS FUNGAL
     Dosage: 1% HOURLY,
     Route: 061

REACTIONS (1)
  - Ocular surface squamous neoplasia [Recovered/Resolved]
